FAERS Safety Report 17324208 (Version 1)
Quarter: 2020Q1

REPORT INFORMATION
  Report Type: Spontaneous
  Country: SI (occurrence: SI)
  Receive Date: 20200127
  Receipt Date: 20200127
  Transmission Date: 20200409
  Serious: Yes (Life-Threatening, Other)
  Sender: FDA-Public Use
  Company Number: SI-TEVA-2020-SI-1173862

PATIENT
  Age: 39 Year
  Sex: Female

DRUGS (1)
  1. BOPACATIN 10MG/ML [Suspect]
     Active Substance: CARBOPLATIN
     Indication: BREAST CANCER
     Dosage: 10 MG/ML CONCENTRATE FOR SOLUTION FOR INFUSION, DOSE: AUC 1,5
     Route: 042
     Dates: start: 20191009, end: 20191216

REACTIONS (2)
  - Neutropenia [Not Recovered/Not Resolved]
  - Peripheral sensory neuropathy [Not Recovered/Not Resolved]

NARRATIVE: CASE EVENT DATE: 20191113
